FAERS Safety Report 6347826-5 (Version None)
Quarter: 2009Q3

REPORT INFORMATION
  Report Type: 
  Country: None (occurrence: None)
  Receive Date: 20090910
  Receipt Date: 20090831
  Transmission Date: 20100115
  Serious: Yes (Hospitalization, Disabling)
  Sender: FDA-Public Use
  Company Number: B0590580A

PATIENT
  Sex: Female

DRUGS (3)
  1. VALTREX [Suspect]
     Indication: HERPES ZOSTER
     Dosage: 1000MG THREE TIMES PER DAY
     Route: 048
     Dates: start: 20090725, end: 20090725
  2. NORVASC [Concomitant]
     Indication: HYPERTENSION
     Dosage: 5MG PER DAY
     Route: 048
  3. BLOPRESS [Concomitant]
     Indication: HYPERTENSION
     Dosage: 8MG PER DAY
     Route: 048

REACTIONS (16)
  - ALTERED STATE OF CONSCIOUSNESS [None]
  - BLISTER [None]
  - DEHYDRATION [None]
  - DEMENTIA ALZHEIMER'S TYPE [None]
  - DYSARTHRIA [None]
  - DYSLALIA [None]
  - ENCEPHALOPATHY [None]
  - ERYTHEMA [None]
  - PAIN [None]
  - PORIOMANIA [None]
  - RASH PUSTULAR [None]
  - RENAL FAILURE ACUTE [None]
  - RENAL IMPAIRMENT [None]
  - SCAB [None]
  - URINE OUTPUT DECREASED [None]
  - VOMITING [None]
